FAERS Safety Report 10160328 (Version 1)
Quarter: 2014Q2

REPORT INFORMATION
  Report Type: Spontaneous
  Country: FR (occurrence: FR)
  Receive Date: 20140508
  Receipt Date: 20140508
  Transmission Date: 20141212
  Serious: Yes (Hospitalization)
  Sender: FDA-Public Use
  Company Number: FR-PFIZER INC-2014123301

PATIENT
  Age: 57 Year
  Sex: Male

DRUGS (13)
  1. LYRICA [Suspect]
     Dosage: UNK
     Route: 048
     Dates: start: 20140310, end: 20140320
  2. ILOPROST [Suspect]
     Dosage: UNK
     Route: 042
     Dates: start: 20140305, end: 20140320
  3. LOVENOX [Suspect]
     Dosage: UNK
     Route: 058
     Dates: start: 20140310, end: 20140318
  4. AUGMENTIN [Suspect]
     Dosage: UNK
     Route: 042
     Dates: start: 20140312, end: 20140318
  5. ONBREZ [Concomitant]
     Dosage: UNK
     Dates: start: 20140310
  6. SINGULAIR [Concomitant]
     Dosage: UNK
     Dates: start: 20140310
  7. ACTISKENAN [Concomitant]
     Dosage: UNK
     Dates: start: 20140310
  8. CRESTOR [Concomitant]
     Dosage: UNK
     Dates: start: 20140310
  9. CONTRAMAL [Concomitant]
     Dosage: UNK
     Dates: start: 20140310
  10. KARDEGIC [Concomitant]
     Dosage: UNK
     Dates: start: 20140311
  11. PREVISCAN [Concomitant]
     Dosage: UNK
     Dates: start: 20140311
  12. EUPANTOL [Concomitant]
     Dosage: UNK
     Dates: start: 20140311
  13. PERINDOPRIL [Concomitant]
     Dosage: UNK
     Dates: start: 20140311

REACTIONS (2)
  - Toxic skin eruption [Recovered/Resolved]
  - Eosinophilia [Recovered/Resolved]
